FAERS Safety Report 24409814 (Version 2)
Quarter: 2025Q2

REPORT INFORMATION
  Report Type: Spontaneous
  Country: US (occurrence: US)
  Receive Date: 20241008
  Receipt Date: 20250421
  Transmission Date: 20250716
  Serious: No
  Sender: CSL BEHRING
  Company Number: US-BEH-2024179592

PATIENT
  Age: 74 Year
  Sex: Male

DRUGS (12)
  1. PRIVIGEN [Suspect]
     Active Substance: HUMAN IMMUNOGLOBULIN G
     Indication: Myopathy
     Route: 042
  2. PRIVIGEN [Suspect]
     Active Substance: HUMAN IMMUNOGLOBULIN G
     Indication: Off label use
     Route: 042
  3. FOLIC ACID [Concomitant]
     Active Substance: FOLIC ACID
  4. METHOTREXATE [Concomitant]
     Active Substance: METHOTREXATE
  5. UNSPECIFIED INGREDIENT [Concomitant]
     Active Substance: UNSPECIFIED INGREDIENT
  6. FLAXSEED [Concomitant]
     Active Substance: FLAX SEED
  7. FLOMAX [Concomitant]
     Active Substance: TAMSULOSIN HYDROCHLORIDE
  8. LOSARTAN POTASSIUM [Concomitant]
     Active Substance: LOSARTAN POTASSIUM
  9. METFORMIN HYDROCHLORIDE [Concomitant]
     Active Substance: METFORMIN HYDROCHLORIDE
  10. Multi vitamin Elite [Concomitant]
  11. REPATHA [Concomitant]
     Active Substance: EVOLOCUMAB
  12. VITAMIN D3 [Concomitant]
     Active Substance: CHOLECALCIFEROL

REACTIONS (3)
  - Headache [Unknown]
  - Headache [Unknown]
  - Off label use [Unknown]
